FAERS Safety Report 16836006 (Version 1)
Quarter: 2019Q3

REPORT INFORMATION
  Report Type: Spontaneous
  Country: CO (occurrence: CO)
  Receive Date: 20190920
  Receipt Date: 20190920
  Transmission Date: 20191005
  Serious: Yes (Hospitalization)
  Sender: FDA-Public Use
  Company Number: CO-BAXTER-2019BAX018112

PATIENT
  Age: 9 Day
  Weight: 3.39 kg

DRUGS (2)
  1. VANCOCIN CP INYECTABLE [Suspect]
     Active Substance: VANCOMYCIN HYDROCHLORIDE
     Indication: STAPHYLOCOCCAL SEPSIS
     Dosage: 1 UNIT
     Route: 042
     Dates: start: 20190702
  2. VANCOCIN CP INYECTABLE [Suspect]
     Active Substance: VANCOMYCIN HYDROCHLORIDE
     Dosage: DOSE READJUSTED
     Route: 042
     Dates: start: 20190709

REACTIONS (1)
  - Treatment failure [Unknown]

NARRATIVE: CASE EVENT DATE: 201907
